FAERS Safety Report 25771420 (Version 4)
Quarter: 2025Q4

REPORT INFORMATION
  Report Type: Report from Study
  Country: US (occurrence: US)
  Receive Date: 20250908
  Receipt Date: 20251010
  Transmission Date: 20260117
  Serious: Yes (Hospitalization)
  Sender: NOVARTIS
  Company Number: US-002147023-NVSC2025US051209

PATIENT
  Age: 18 Year
  Sex: Female
  Weight: 54.5 kg

DRUGS (4)
  1. COSENTYX [Suspect]
     Active Substance: SECUKINUMAB
     Indication: Hidradenitis
     Dosage: 300 MG, Q4W
     Route: 058
     Dates: start: 20250214
  2. COSENTYX [Suspect]
     Active Substance: SECUKINUMAB
     Dosage: 300 MG, QMO
     Route: 058
     Dates: start: 20250219
  3. COSENTYX [Suspect]
     Active Substance: SECUKINUMAB
     Dosage: UNK, QMO
     Route: 058
  4. CLINDAMYCIN [Concomitant]
     Active Substance: CLINDAMYCIN
     Indication: Hidradenitis
     Dosage: 300 MG, BID
     Route: 048
     Dates: start: 20250828, end: 20250902

REACTIONS (12)
  - Hidradenitis [Unknown]
  - Condition aggravated [Unknown]
  - Pyrexia [Recovering/Resolving]
  - Gastrointestinal pain [Unknown]
  - Product supply issue [Unknown]
  - Faeces discoloured [Unknown]
  - Skin mass [Unknown]
  - Urinary tract infection [Unknown]
  - White blood cell count decreased [Unknown]
  - Blood iron decreased [Unknown]
  - Vomiting [Unknown]
  - Product dose omission issue [Unknown]

NARRATIVE: CASE EVENT DATE: 20250326
